FAERS Safety Report 10484684 (Version 1)
Quarter: 2014Q3

REPORT INFORMATION
  Report Type: Spontaneous
  Country: FR (occurrence: FR)
  Receive Date: 20140930
  Receipt Date: 20140930
  Transmission Date: 20150326
  Serious: Yes (Hospitalization)
  Sender: FDA-Public Use
  Company Number: FR-SA-2014SA131302

PATIENT
  Age: 60 Year
  Sex: Female
  Weight: 95 kg

DRUGS (19)
  1. CORDARONE [Concomitant]
     Active Substance: AMIODARONE HYDROCHLORIDE
     Indication: ATRIAL FIBRILLATION
     Route: 048
     Dates: start: 20140730, end: 20140811
  2. RIVOTRIL [Concomitant]
     Active Substance: CLONAZEPAM
     Indication: CONVULSION
     Dates: start: 20140803
  3. MESNA. [Concomitant]
     Active Substance: MESNA
     Dosage: ROUTE: IV NOS AND ORAL; AS RECOMMENDED DOSES (NOS)
  4. INNOHEP [Concomitant]
     Active Substance: TINZAPARIN SODIUM
     Route: 058
  5. GARDENAL [Concomitant]
     Active Substance: PHENOBARBITAL
     Indication: EPILEPSY
     Dates: start: 201408
  6. CARBOPLATIN. [Concomitant]
     Active Substance: CARBOPLATIN
     Indication: LYMPHOMA
     Dosage: DOSE: 610 MG AT DAY 2
     Route: 042
     Dates: start: 20140802, end: 20140802
  7. ETOPOPHOS [Concomitant]
     Active Substance: ETOPOSIDE PHOSPHATE
     Indication: LYMPHOMA
     Route: 042
     Dates: start: 20140801, end: 20140801
  8. FASTURTEC [Suspect]
     Active Substance: RASBURICASE
     Route: 065
     Dates: start: 20140805
  9. PERFALGAN [Concomitant]
     Active Substance: ACETAMINOPHEN
     Dates: start: 20140801, end: 20140801
  10. MABTHERA [Concomitant]
     Active Substance: RITUXIMAB
     Indication: LYMPHOMA
     Dosage: 750 MG AT DAY 1
     Route: 042
     Dates: start: 20140801, end: 20140801
  11. EMEND [Concomitant]
     Active Substance: APREPITANT
     Route: 048
     Dates: start: 20140801, end: 20140803
  12. ZOPHREN [Concomitant]
     Active Substance: ONDANSETRON
     Route: 042
     Dates: start: 20140731, end: 20140731
  13. PLITICAN [Concomitant]
     Active Substance: ALIZAPRIDE HYDROCHLORIDE
     Dosage: FORM: VIAL
     Route: 042
     Dates: start: 20140731, end: 20140801
  14. INEXIUM [Concomitant]
     Active Substance: ESOMEPRAZOLE
     Dosage: LONG STANDING TREATMENT
  15. HOLOXAN [Concomitant]
     Active Substance: IFOSFAMIDE
     Indication: LYMPHOMA
     Dosage: 10G ON DAY 2 DOSE:5 GRAM(S)/SQUARE METER
     Route: 042
     Dates: start: 20140802, end: 20140802
  16. METHYLPREDNISOLONE [Concomitant]
     Active Substance: METHYLPREDNISOLONE
     Route: 042
     Dates: start: 20140801, end: 20140801
  17. ZELITREX [Concomitant]
     Active Substance: VALACYCLOVIR HYDROCHLORIDE
     Dosage: LONG STANDING TREATMENT
  18. POLARAMINE [Concomitant]
     Active Substance: DEXCHLORPHENIRAMINE MALEATE
     Dates: start: 20140801, end: 20140801
  19. BACTRIM [Concomitant]
     Active Substance: SULFAMETHOXAZOLE\TRIMETHOPRIM
     Dosage: LONG STANDING TREATMENT

REACTIONS (2)
  - Tumour lysis syndrome [Unknown]
  - Renal failure acute [Unknown]

NARRATIVE: CASE EVENT DATE: 201408
